FAERS Safety Report 23777181 (Version 1)
Quarter: 2024Q2

REPORT INFORMATION
  Report Type: Spontaneous
  Country: JP (occurrence: JP)
  Receive Date: 20240424
  Receipt Date: 20240424
  Transmission Date: 20240715
  Serious: Yes (Other)
  Sender: FDA-Public Use
  Company Number: JP-BAXTER-2024BAX017251

PATIENT
  Age: 6 Decade
  Sex: Male

DRUGS (1)
  1. CYCLOPHOSPHAMIDE [Suspect]
     Active Substance: CYCLOPHOSPHAMIDE
     Dosage: UNK, START DATE: JAN 2021, STOP DATE: JAN 2021
     Route: 065

REACTIONS (1)
  - Cardiac dysfunction [Unknown]
